FAERS Safety Report 25250227 (Version 1)
Quarter: 2025Q2

REPORT INFORMATION
  Report Type: Spontaneous
  Country: US (occurrence: None)
  Receive Date: 20250428
  Receipt Date: 20250428
  Transmission Date: 20250717
  Serious: No
  Sender: FDA-CTU
  Company Number: None

PATIENT
  Age: 60 Year
  Sex: Female

DRUGS (1)
  1. OLUMIANT [Suspect]
     Active Substance: BARICITINIB
     Indication: Alopecia
     Dosage: ?4 MG/MG DAILY ORAL
     Route: 048
     Dates: start: 20241230

REACTIONS (2)
  - Acne [None]
  - Skin disorder [None]

NARRATIVE: CASE EVENT DATE: 20250428
